FAERS Safety Report 6462682-2 (Version None)
Quarter: 2009Q4

REPORT INFORMATION
  Report Type: 
  Country: None (occurrence: None)
  Receive Date: 20091130
  Receipt Date: 20091116
  Transmission Date: 20100525
  Serious: Yes (Death, Other)
  Sender: FDA-Public Use
  Company Number: US-GENENTECH-294800

PATIENT

DRUGS (2)
  1. AVASTIN [Suspect]
     Indication: MALIGNANT GLIOMA
     Dosage: UNK
     Route: 042
  2. ERLOTINIB [Suspect]
     Indication: MALIGNANT GLIOMA
     Route: 065

REACTIONS (1)
  - DEATH [None]
